FAERS Safety Report 8680390 (Version 2)
Quarter: 2013Q3

REPORT INFORMATION
  Report Type: Report from Study
  Country: DE (occurrence: DE)
  Receive Date: 20120724
  Receipt Date: 20130813
  Transmission Date: 20140515
  Serious: Yes (Hospitalization, Other)
  Sender: FDA-Public Use
  Company Number: DE-ABBOTT-12P-062-0956527-00

PATIENT
  Age: 57 Year
  Sex: Female

DRUGS (1)
  1. HUMIRA 40 MG/ 0.8 ML PRE-FILLED SYRINGE [Suspect]
     Indication: RHEUMATOID ARTHRITIS
     Route: 058
     Dates: start: 2005

REACTIONS (5)
  - Therapy change [Recovered/Resolved]
  - Foot fracture [Recovered/Resolved]
  - Nasal mucosa atrophy [Recovered/Resolved]
  - Epistaxis [Recovered/Resolved]
  - Nasal mucosal disorder [Unknown]
